FAERS Safety Report 22726824 (Version 2)
Quarter: 2023Q4

REPORT INFORMATION
  Report Type: Spontaneous
  Country: CA (occurrence: CA)
  Receive Date: 20230720
  Receipt Date: 20231206
  Transmission Date: 20240109
  Serious: Yes (Other)
  Sender: FDA-Public Use
  Company Number: CA-UCBSA-2023035998

PATIENT
  Age: 52 Year
  Sex: Female
  Weight: 73.48 kg

DRUGS (3)
  1. CIMZIA [Suspect]
     Active Substance: CERTOLIZUMAB PEGOL
     Indication: Ankylosing spondylitis
     Dosage: UNK
     Dates: start: 2020
  2. CIMZIA [Suspect]
     Active Substance: CERTOLIZUMAB PEGOL
     Indication: Crohn^s disease
  3. METHOTREXATE SODIUM [Suspect]
     Active Substance: METHOTREXATE SODIUM
     Indication: Ankylosing spondylitis
     Dosage: 1 DOSAGE FORM
     Dates: start: 2020

REACTIONS (20)
  - Loss of personal independence in daily activities [Unknown]
  - Diarrhoea [Unknown]
  - Abdominal pain [Unknown]
  - Dry eye [Unknown]
  - Fatigue [Unknown]
  - Asthenia [Unknown]
  - Psoriasis [Unknown]
  - Lacrimation increased [Unknown]
  - Pain in extremity [Unknown]
  - Pelvic pain [Unknown]
  - Oedema [Unknown]
  - Tendonitis [Unknown]
  - Plantar fasciitis [Unknown]
  - Synovitis [Unknown]
  - General symptom [Unknown]
  - Inflammation [Unknown]
  - Drug intolerance [Unknown]
  - Drug ineffective [Unknown]
  - Therapeutic product effect incomplete [Unknown]
  - Sick leave [Unknown]

NARRATIVE: CASE EVENT DATE: 20230630
